FAERS Safety Report 6831098-9 (Version None)
Quarter: 2010Q3

REPORT INFORMATION
  Report Type: 
  Country: None (occurrence: None)
  Receive Date: 20100712
  Receipt Date: 20100702
  Transmission Date: 20110219
  Serious: Yes (Hospitalization, Other)
  Sender: FDA-Public Use
  Company Number: US-JNJFOC-20100702233

PATIENT
  Sex: Female
  Weight: 55.79 kg

DRUGS (9)
  1. FENTANYL CITRATE [Suspect]
     Indication: MUSCULOSKELETAL DISORDER
     Route: 062
  2. FENTANYL CITRATE [Suspect]
     Route: 062
  3. FENTANYL CITRATE [Suspect]
     Route: 062
  4. LEXAPRO [Concomitant]
     Indication: DEPRESSION
     Route: 048
  5. CELEBREX [Concomitant]
     Indication: PAIN
     Route: 048
  6. SINGULAIR [Concomitant]
     Indication: RHINORRHOEA
     Route: 048
  7. SINGULAIR [Concomitant]
     Indication: SINUS DISORDER
     Route: 048
  8. CLARINEX [Concomitant]
     Indication: HEADACHE
     Route: 048
  9. CLARINEX [Concomitant]
     Indication: SINUS DISORDER
     Route: 048

REACTIONS (5)
  - LUNG CANCER METASTATIC [None]
  - ROTATOR CUFF REPAIR [None]
  - SHOULDER OPERATION [None]
  - SPINAL OPERATION [None]
  - THERAPEUTIC RESPONSE DECREASED [None]
